FAERS Safety Report 5785803-3 (Version None)
Quarter: 2008Q2

REPORT INFORMATION
  Report Type: 
  Country: None (occurrence: None)
  Receive Date: 20080605
  Receipt Date: 20080225
  Transmission Date: 20081010
  Serious: No
  Sender: FDA-Public Use
  Company Number: A0711536A

PATIENT
  Sex: Female

DRUGS (2)
  1. ALLI [Suspect]
     Indication: DRUG USE FOR UNKNOWN INDICATION
  2. ORTHO-NOVUM [Suspect]

REACTIONS (3)
  - DRUG INTERACTION [None]
  - MENORRHAGIA [None]
  - POLYMENORRHOEA [None]
